FAERS Safety Report 4897250-7 (Version None)
Quarter: 2005Q4

REPORT INFORMATION
  Report Type: 
  Country: None (occurrence: None)
  Receive Date: 20051223
  Receipt Date: 20050923
  Transmission Date: 20060501
  Serious: No
  Sender: FDA-Public Use
  Company Number: 05P-163-0311778-00

PATIENT
  Age: 68 Year
  Sex: Female
  Weight: 64.8644 kg

DRUGS (8)
  1. HUMIRA [Suspect]
     Indication: RHEUMATOID ARTHRITIS
     Dosage: 40 MG, 1 IN 2 WK, SUBCUTANEOUS
     Route: 058
     Dates: start: 20050701
  2. ESTROGENS CONJUGATED [Concomitant]
  3. GABAPENTIN [Concomitant]
  4. POTASSIUM [Concomitant]
  5. ALPRAZOLAM [Concomitant]
  6. MULTIVITAMIN [Concomitant]
  7. CITRACAL+ D [Concomitant]
  8. PREDSNSONE [Concomitant]

REACTIONS (1)
  - DRUG INEFFECTIVE [None]
